FAERS Safety Report 22163396 (Version 1)
Quarter: 2023Q2

REPORT INFORMATION
  Report Type: Spontaneous
  Country: CD (occurrence: CD)
  Receive Date: 20230401
  Receipt Date: 20230401
  Transmission Date: 20230722
  Serious: Yes (Death, Other)
  Sender: FDA-Public Use
  Company Number: CD-002147023-NVSC2023CD075656

PATIENT
  Sex: Male

DRUGS (1)
  1. GLIVEC [Suspect]
     Active Substance: IMATINIB MESYLATE
     Indication: Gastrointestinal stromal tumour
     Dosage: 400 MG (4 X 100 MG)
     Route: 065

REACTIONS (3)
  - Gastrointestinal haemorrhage [Fatal]
  - Gastrointestinal stromal tumour [Fatal]
  - Malignant neoplasm progression [Fatal]
